FAERS Safety Report 7352918-8 (Version None)
Quarter: 2011Q1

REPORT INFORMATION
  Report Type: 
  Country: None (occurrence: None)
  Receive Date: 20110315
  Receipt Date: 20110310
  Transmission Date: 20110831
  Serious: Yes (Hospitalization, Other)
  Sender: FDA-Public Use
  Company Number: BR-ABBOTT-11P-020-0711082-00

PATIENT
  Sex: Female
  Weight: 54 kg

DRUGS (8)
  1. HUMIRA [Suspect]
     Indication: RHEUMATOID ARTHRITIS
     Route: 058
     Dates: start: 20080101
  2. COMBIRON [Concomitant]
     Indication: ANAEMIA
     Route: 048
  3. OSTEOFORM [Concomitant]
     Indication: BONE DISORDER
     Route: 048
  4. OMEPRAZOLE [Concomitant]
     Indication: PROPHYLAXIS
     Route: 048
  5. ENALAPRIL MALEATE [Concomitant]
     Indication: HYPERTENSION
     Route: 048
  6. OMEPRAZOLE [Concomitant]
     Indication: GASTRIC DISORDER
  7. CHLOROQUINE / MELOXICAN/ PREDNISONE [Concomitant]
     Indication: RHEUMATOID ARTHRITIS
     Route: 048
  8. ICTUS [Concomitant]
     Indication: HYPERTENSION
     Route: 048

REACTIONS (3)
  - FEMUR FRACTURE [None]
  - ARTHRALGIA [None]
  - ANAEMIA [None]
